FAERS Safety Report 5312932-0 (Version None)
Quarter: 2007Q2

REPORT INFORMATION
  Report Type: 
  Country: None (occurrence: None)
  Receive Date: 20070430
  Receipt Date: 20070420
  Transmission Date: 20071010
  Serious: Yes (Hospitalization)
  Sender: FDA-Public Use
  Company Number: US-AMGEN-US221093

PATIENT
  Sex: Female

DRUGS (2)
  1. ENBREL [Suspect]
     Indication: RHEUMATOID ARTHRITIS
     Route: 058
     Dates: start: 20060428
  2. METHOTREXATE [Concomitant]
     Route: 065
     Dates: start: 20050101

REACTIONS (2)
  - DIPLOPIA [None]
  - VISION BLURRED [None]
